FAERS Safety Report 19701417 (Version 1)
Quarter: 2021Q3

REPORT INFORMATION
  Report Type: Spontaneous
  Country: US (occurrence: US)
  Receive Date: 20210813
  Receipt Date: 20210813
  Transmission Date: 20211014
  Serious: Yes (Other)
  Sender: FDA-Public Use
  Company Number: US-ELI_LILLY_AND_COMPANY-US202108001089

PATIENT
  Sex: Female

DRUGS (1)
  1. HUMALOG [Suspect]
     Active Substance: INSULIN LISPRO
     Indication: TYPE 1 DIABETES MELLITUS
     Dosage: UNK, UNKNOWN
     Route: 065

REACTIONS (9)
  - Carotid artery occlusion [Unknown]
  - Product storage error [Unknown]
  - Basal cell carcinoma [Unknown]
  - Blood glucose decreased [Unknown]
  - Adenoidal disorder [Unknown]
  - Pericardial haemorrhage [Unknown]
  - Sternal fracture [Unknown]
  - Nasal cavity cancer [Unknown]
  - Hypotension [Unknown]
